FAERS Safety Report 20403957 (Version 1)
Quarter: 2022Q1

REPORT INFORMATION
  Report Type: Report from Study
  Country: US (occurrence: US)
  Receive Date: 20220131
  Receipt Date: 20220131
  Transmission Date: 20220423
  Serious: Yes (Other)
  Sender: FDA-Public Use
  Company Number: US-KOREA IPSEN Pharma-2022-02167

PATIENT
  Age: 63 Year
  Sex: Female

DRUGS (1)
  1. SOMATULINE DEPOT [Suspect]
     Active Substance: LANREOTIDE ACETATE
     Indication: Neuroendocrine tumour
     Dosage: 120MG (START DATE: SEP-2021 OR OCT-2021)
     Route: 058
     Dates: start: 2021

REACTIONS (5)
  - Feeling abnormal [Unknown]
  - Rash [Unknown]
  - Constipation [Unknown]
  - Injection site mass [Unknown]
  - Diarrhoea [Unknown]
